FAERS Safety Report 14497303 (Version 1)
Quarter: 2018Q1

REPORT INFORMATION
  Report Type: Spontaneous
  Country: US (occurrence: US)
  Receive Date: 20180207
  Receipt Date: 20180207
  Transmission Date: 20180509
  Serious: Yes (Hospitalization, Other)
  Sender: FDA-Public Use
  Company Number: US-IPSEN BIOPHARMACEUTICALS, INC.-2018-02093

PATIENT
  Sex: Female
  Weight: 70.3 kg

DRUGS (12)
  1. OCTREOTIDE. [Concomitant]
     Active Substance: OCTREOTIDE
  2. VITAMIN D2 [Concomitant]
     Active Substance: ERGOCALCIFEROL
  3. ZANTAC [Concomitant]
     Active Substance: RANITIDINE HYDROCHLORIDE
  4. CREON [Concomitant]
     Active Substance: PANCRELIPASE AMYLASE\PANCRELIPASE LIPASE\PANCRELIPASE PROTEASE
  5. XANAX [Concomitant]
     Active Substance: ALPRAZOLAM
  6. XERMELO [Suspect]
     Active Substance: TELOTRISTAT ETHYL
     Indication: CARCINOID SYNDROME
     Route: 048
     Dates: start: 20171013, end: 201801
  7. LANREOTIDE AUTOGEL [Suspect]
     Active Substance: LANREOTIDE
     Indication: PRODUCT USED FOR UNKNOWN INDICATION
     Dosage: NOT REPORTED
     Route: 058
     Dates: end: 201801
  8. CULTURELLE [Concomitant]
     Active Substance: LACTOBACILLUS RHAMNOSUS
  9. QUESTRAN [Concomitant]
     Active Substance: CHOLESTYRAMINE
  10. TYLENOL [Concomitant]
     Active Substance: ACETAMINOPHEN
  11. LIPITOR [Concomitant]
     Active Substance: ATORVASTATIN CALCIUM
  12. VITAMIN B3 [Concomitant]
     Active Substance: NIACIN

REACTIONS (12)
  - Nephrotic syndrome [Recovering/Resolving]
  - Proteinuria [Not Recovered/Not Resolved]
  - Vitamin D deficiency [Unknown]
  - Orthostatic hypotension [Unknown]
  - Vitamin B12 deficiency [Unknown]
  - Haemorrhoids [Unknown]
  - Diverticulum intestinal [Unknown]
  - Lipids abnormal [Not Recovered/Not Resolved]
  - Hypovolaemia [Unknown]
  - Generalised oedema [Not Recovered/Not Resolved]
  - Oedema [Not Recovered/Not Resolved]
  - Eczema [Unknown]

NARRATIVE: CASE EVENT DATE: 2017
